FAERS Safety Report 7693481-1 (Version None)
Quarter: 2011Q3

REPORT INFORMATION
  Report Type: 
  Country: None (occurrence: None)
  Receive Date: 20110819
  Receipt Date: 20110819
  Transmission Date: 20111222
  Serious: Yes (Hospitalization)
  Sender: FDA-Public Use
  Company Number: None

PATIENT
  Age: 66 Year
  Sex: Female
  Weight: 51 kg

DRUGS (1)
  1. BACTRIM DS [Suspect]
     Indication: STAPHYLOCOCCAL INFECTION
     Dosage: 1 TABLET
     Route: 048
     Dates: start: 20110811, end: 20110817

REACTIONS (8)
  - FATIGUE [None]
  - BACK PAIN [None]
  - SERUM SICKNESS [None]
  - NO THERAPEUTIC RESPONSE [None]
  - BODY TEMPERATURE INCREASED [None]
  - RASH [None]
  - PAIN IN EXTREMITY [None]
  - PLATELET COUNT DECREASED [None]
